FAERS Safety Report 17978816 (Version 1)
Quarter: 2020Q3

REPORT INFORMATION
  Report Type: Spontaneous
  Country: CN (occurrence: CN)
  Receive Date: 20200703
  Receipt Date: 20200703
  Transmission Date: 20201103
  Serious: Yes (Hospitalization)
  Sender: FDA-Public Use
  Company Number: CN-PFIZER INC-2020254253

PATIENT
  Age: 78 Year
  Sex: Female
  Weight: 53 kg

DRUGS (3)
  1. DIFLUCAN [Suspect]
     Active Substance: FLUCONAZOLE
     Indication: ANTIFUNGAL TREATMENT
     Dosage: 150 MG, 1X/DAY
     Route: 048
     Dates: start: 20200529, end: 20200601
  2. DIFLUCAN [Suspect]
     Active Substance: FLUCONAZOLE
     Indication: ANTIFUNGAL TREATMENT
     Dosage: 100 MG, 1X/DAY
     Route: 041
     Dates: start: 20200520, end: 20200529
  3. CRAVIT [Concomitant]
     Active Substance: LEVOFLOXACIN
     Indication: INFECTION
     Dosage: 0.25 G, 1X/DAY
     Route: 041
     Dates: start: 20200520, end: 20200529

REACTIONS (2)
  - Rash erythematous [Recovering/Resolving]
  - Pruritus [Unknown]

NARRATIVE: CASE EVENT DATE: 20200525
